FAERS Safety Report 6251707-5 (Version None)
Quarter: 2009Q2

REPORT INFORMATION
  Report Type: 
  Country: None (occurrence: None)
  Receive Date: 20090630
  Receipt Date: 20090617
  Transmission Date: 20091009
  Serious: Yes (Hospitalization, Other)
  Sender: FDA-Public Use
  Company Number: GB-MYLANLABS-2009S1009854

PATIENT
  Age: 49 Year
  Sex: Female
  Weight: 89 kg

DRUGS (11)
  1. PAROXETINE HCL [Suspect]
     Indication: DEPRESSION
  2. METHYLENE BLUE [Suspect]
     Indication: PARATHYROIDECTOMY
  3. ONDANSETRON [Suspect]
     Indication: DRUG USE FOR UNKNOWN INDICATION
  4. ATRACURIUM [Concomitant]
     Indication: ANAESTHESIA
  5. DICLOFENAC [Concomitant]
     Indication: DRUG USE FOR UNKNOWN INDICATION
     Route: 054
  6. ENFLURANE [Concomitant]
     Indication: DRUG USE FOR UNKNOWN INDICATION
     Route: 055
  7. INDOMETHACIN [Concomitant]
     Indication: ARTHRALGIA
  8. MORPHINE [Concomitant]
     Indication: ANALGESIA
     Route: 030
  9. NITROUS OXIDE [Concomitant]
     Indication: DRUG USE FOR UNKNOWN INDICATION
     Route: 055
  10. OXYGEN [Concomitant]
     Indication: DRUG USE FOR UNKNOWN INDICATION
     Route: 025
  11. PROPOFOL [Concomitant]
     Indication: INDUCTION OF ANAESTHESIA

REACTIONS (7)
  - ALKALOSIS [None]
  - DRUG INTERACTION [None]
  - DRUG TOXICITY [None]
  - GAZE PALSY [None]
  - OCULOGYRIC CRISIS [None]
  - PYREXIA [None]
  - SEROTONIN SYNDROME [None]
